FAERS Safety Report 16921487 (Version 1)
Quarter: 2019Q4

REPORT INFORMATION
  Report Type: Spontaneous
  Country: CA (occurrence: CA)
  Receive Date: 20191015
  Receipt Date: 20191015
  Transmission Date: 20200122
  Serious: Yes (Death)
  Sender: FDA-Public Use
  Company Number: CA-TEVA-2019-CA-1121508

PATIENT
  Age: 27 Year
  Sex: Female

DRUGS (7)
  1. DIMENHYDRINATE. [Concomitant]
     Active Substance: DIMENHYDRINATE
  2. ONDANSETRON [Suspect]
     Active Substance: ONDANSETRON
     Indication: NAUSEA
     Route: 048
  3. NABILONE [Concomitant]
     Active Substance: NABILONE
  4. ENOXAPARIN [Concomitant]
     Active Substance: ENOXAPARIN
  5. PHENYTOIN. [Concomitant]
     Active Substance: PHENYTOIN
  6. ACETAMINOPHEN. [Concomitant]
     Active Substance: ACETAMINOPHEN
  7. DOMPERIDONE [Concomitant]
     Active Substance: DOMPERIDONE

REACTIONS (2)
  - Resuscitation [Fatal]
  - Unresponsive to stimuli [Fatal]
